FAERS Safety Report 10078384 (Version 2)
Quarter: 2018Q1

REPORT INFORMATION
  Report Type: Report from Study
  Country: US (occurrence: US)
  Receive Date: 20140415
  Receipt Date: 20180315
  Transmission Date: 20180508
  Serious: Yes (Hospitalization)
  Sender: FDA-Public Use
  Company Number: US-ROCHE-1378667

PATIENT
  Age: 10 Year
  Sex: Male

DRUGS (8)
  1. CLONAZEPAM. [Suspect]
     Active Substance: CLONAZEPAM
     Indication: PRODUCT USED FOR UNKNOWN INDICATION
     Dosage: PLACE BY TRANSLINGUAL ROUTE
     Route: 065
  2. LEVOTHYROXINE SODIUM. [Concomitant]
     Active Substance: LEVOTHYROXINE SODIUM
     Indication: HYPOTHYROIDISM
     Dosage: TAKE ONE-HALF TAB ON AN EMPTY STOMACH IN MORNING
     Route: 048
  3. RISPERIDONE. [Concomitant]
     Active Substance: RISPERIDONE
     Dosage: PLACE 3 TAB EVERY DAY BY TRANSLINGUAL ROUTE AT BED
     Route: 048
  4. NUTROPIN AQ [Suspect]
     Active Substance: SOMATROPIN
     Indication: GROWTH HORMONE DEFICIENCY
     Dosage: 6 INJ/WEEK
     Route: 058
  5. CLONAZEPAM. [Suspect]
     Active Substance: CLONAZEPAM
     Dosage: TAKE 1 TAB AS NEEDED
     Route: 048
  6. NUTROPIN AQ [Suspect]
     Active Substance: SOMATROPIN
     Dosage: 6 INJ/WEEK
     Route: 058
  7. NUTROPIN AQ [Suspect]
     Active Substance: SOMATROPIN
     Dosage: 6 INJ/WEEK
     Route: 058
  8. FOCALIN XR [Concomitant]
     Active Substance: DEXMETHYLPHENIDATE HYDROCHLORIDE
     Dosage: TAKE 1 CAP EVERY DAY
     Route: 048

REACTIONS (4)
  - Sinusitis [Recovered/Resolved]
  - Aggression [Unknown]
  - Seizure [Recovered/Resolved with Sequelae]
  - Vitamin D decreased [Unknown]

NARRATIVE: CASE EVENT DATE: 201304
